FAERS Safety Report 19352380 (Version 1)
Quarter: 2021Q2

REPORT INFORMATION
  Report Type: Other
  Country: GB (occurrence: GB)
  Receive Date: 20210531
  Receipt Date: 20210531
  Transmission Date: 20210717
  Serious: Yes (Death)
  Sender: FDA-Public Use
  Company Number: GB-ROCHE-2833686

PATIENT
  Sex: Female

DRUGS (1)
  1. TRASTUZUMAB. [Suspect]
     Active Substance: TRASTUZUMAB
     Indication: BREAST CANCER
     Route: 065

REACTIONS (9)
  - Thrombocytopenia [Unknown]
  - Hypersensitivity [Unknown]
  - White blood cell count decreased [Unknown]
  - Alopecia [Unknown]
  - Cardiac failure congestive [Fatal]
  - Anaemia [Unknown]
  - Infection [Unknown]
  - Nausea [Unknown]
  - Fatigue [Unknown]
